FAERS Safety Report 16834533 (Version 2)
Quarter: 2019Q4

REPORT INFORMATION
  Report Type: Spontaneous
  Country: US (occurrence: US)
  Receive Date: 20190920
  Receipt Date: 20191107
  Transmission Date: 20200122
  Serious: No
  Sender: FDA-Public Use
  Company Number: US-GLAXOSMITHKLINE-US2019166902

PATIENT
  Age: 73 Year
  Sex: Female

DRUGS (2)
  1. NICODERM CQ [Suspect]
     Active Substance: NICOTINE
     Indication: SMOKING CESSATION THERAPY
     Dosage: 14 MG, QD
     Route: 062
     Dates: start: 20190903
  2. NICODERM CQ [Suspect]
     Active Substance: NICOTINE
     Dosage: 14 MG, QD
     Route: 062
     Dates: start: 20190903

REACTIONS (4)
  - Nicotine dependence [Unknown]
  - Product use issue [Unknown]
  - Drug ineffective [Unknown]
  - Product complaint [Unknown]
